FAERS Safety Report 16331650 (Version 1)
Quarter: 2019Q2

REPORT INFORMATION
  Report Type: Spontaneous
  Country: US (occurrence: US)
  Receive Date: 20190518
  Receipt Date: 20190518
  Transmission Date: 20190711
  Serious: Yes (Other)
  Sender: FDA-Public Use
  Company Number: None

PATIENT
  Age: 63 Year
  Sex: Female
  Weight: 112.5 kg

DRUGS (1)
  1. OLMESARTAN MEDOX/HCTZ 40-12.5MG TAB [Suspect]
     Active Substance: HYDROCHLOROTHIAZIDE\OLMESARTAN MEDOXOMIL
     Indication: BLOOD PRESSURE MEASUREMENT
     Dosage: ?          QUANTITY:1 TABLET(S);?
     Route: 048
     Dates: start: 20190323, end: 20190517

REACTIONS (9)
  - Balance disorder [None]
  - Dehydration [None]
  - Fluid retention [None]
  - Muscle tightness [None]
  - Chest discomfort [None]
  - Product substitution issue [None]
  - Vomiting [None]
  - Peripheral swelling [None]
  - Musculoskeletal disorder [None]

NARRATIVE: CASE EVENT DATE: 20190325
